FAERS Safety Report 14977650 (Version 5)
Quarter: 2024Q1

REPORT INFORMATION
  Report Type: Spontaneous
  Country: ES (occurrence: ES)
  Receive Date: 20180606
  Receipt Date: 20240130
  Transmission Date: 20240409
  Serious: Yes (Hospitalization, Other)
  Sender: FDA-Public Use
  Company Number: ES-WATSON-2011-07607

PATIENT
  Age: 66 Year
  Sex: Female

DRUGS (8)
  1. QUETIAPINE [Interacting]
     Active Substance: QUETIAPINE
     Indication: Psychotic disorder
     Dosage: 300 MILLIGRAM, DAILY
     Route: 048
     Dates: start: 200703
  2. QUETIAPINE [Interacting]
     Active Substance: QUETIAPINE
     Indication: Bipolar disorder
     Dosage: 800 MILLIGRAM, DAILY
     Route: 048
     Dates: start: 200703
  3. QUETIAPINE [Interacting]
     Active Substance: QUETIAPINE
     Dosage: 800 MILLIGRAM, DAILY
     Route: 048
     Dates: start: 20070809, end: 20070826
  4. QUETIAPINE [Suspect]
     Active Substance: QUETIAPINE
     Indication: Bipolar disorder
     Dosage: 600 MILLIGRAM, ONCE A DAY (DOSIS UNIDAD FRECUENCIA: 600 MG-MILIGRAMOS UNIDAD DE FRECUENCIA: 1 D?A)
     Route: 048
     Dates: start: 20070809, end: 20070826
  5. VALPROATE SODIUM [Interacting]
     Active Substance: VALPROATE SODIUM
     Indication: Mania
     Dosage: 1300 MILLIGRAM, ONCE A DAY (DOSIS UNIDAD FRECUENCIA: 1300 MG-MILIGRAMOS UNIDAD DE FRECUENCIA: 1 D?A)
     Route: 048
     Dates: start: 20070809, end: 20070826
  6. VALPROIC ACID [Interacting]
     Active Substance: VALPROIC ACID
     Indication: Bipolar disorder
     Dosage: 1 GRAM, ONCE A DAY
     Route: 065
  7. VALPROIC ACID [Interacting]
     Active Substance: VALPROIC ACID
     Indication: Mania
     Dosage: 1500 MILLIGRAM, ONCE A DAY
     Route: 065
     Dates: start: 20070809, end: 20070826
  8. CLOPIDOGREL [Concomitant]
     Active Substance: CLOPIDOGREL BISULFATE
     Indication: Product used for unknown indication
     Dosage: 75 MILLIGRAM, ONCE A DAY
     Route: 065

REACTIONS (19)
  - Somnolence [Recovered/Resolved]
  - Hemiparesis [Recovered/Resolved]
  - Bradyphrenia [Recovered/Resolved]
  - Irritability [Unknown]
  - Depressed level of consciousness [Recovered/Resolved]
  - Bedridden [Recovered/Resolved]
  - Psychomotor hyperactivity [Unknown]
  - Bradykinesia [Recovered/Resolved]
  - Tremor [Recovered/Resolved]
  - Psychotic disorder [Unknown]
  - Muscle rigidity [Recovered/Resolved]
  - Insomnia [Unknown]
  - Euphoric mood [Unknown]
  - Incontinence [Recovered/Resolved]
  - Disorientation [Recovered/Resolved]
  - Memory impairment [Recovered/Resolved]
  - Cognitive disorder [Recovered/Resolved]
  - Parkinsonism [Recovered/Resolved]
  - Drug interaction [Recovered/Resolved]

NARRATIVE: CASE EVENT DATE: 20070801
